FAERS Safety Report 5422159-X (Version None)
Quarter: 2007Q3

REPORT INFORMATION
  Report Type: 
  Country: None (occurrence: None)
  Receive Date: 20070821
  Receipt Date: 20070821
  Transmission Date: 20080115
  Serious: No
  Sender: FDA-Public Use
  Company Number: None

PATIENT
  Age: 69 Year
  Sex: Male
  Weight: 118.8424 kg

DRUGS (1)
  1. VARENICLINE [Suspect]
     Indication: EX-SMOKER
     Dosage: 0.5MG EVERY DAY PO
     Route: 048
     Dates: start: 20070727, end: 20070730

REACTIONS (2)
  - NAUSEA [None]
  - VOMITING [None]
